FAERS Safety Report 7324457-1 (Version None)
Quarter: 2011Q1

REPORT INFORMATION
  Report Type: 
  Country: None (occurrence: None)
  Receive Date: 20110301
  Receipt Date: 20110225
  Transmission Date: 20110831
  Serious: Yes (Other)
  Sender: FDA-Public Use
  Company Number: US-PFIZER INC-2011009304

PATIENT
  Sex: Female
  Weight: 108.8 kg

DRUGS (12)
  1. WARFARIN [Concomitant]
     Dosage: 5 MG, UNK
  2. SIMVASTATIN [Concomitant]
     Dosage: 80 MG, UNK
  3. LEVOTHYROXINE [Concomitant]
     Dosage: 200 MG, UNK
  4. TIKOSYN [Suspect]
     Indication: ATRIAL FIBRILLATION
     Dosage: 0.25 MG, 2X/DAY
     Route: 048
  5. LISINOPRIL [Concomitant]
     Dosage: 5 MG, UNK
  6. CENTRUM SILVER [Concomitant]
     Dosage: UNK
  7. POTASSIUM [Concomitant]
     Dosage: 20 MG, UNK
  8. FENOFIBRATE [Concomitant]
     Dosage: 160 MG, UNK
  9. ACETAMINOPHEN [Concomitant]
     Indication: ARTHRITIS
     Dosage: UNK
  10. LASIX [Suspect]
     Indication: SWELLING
     Dosage: 80 MG, DAILY
     Route: 048
     Dates: start: 20101201, end: 20110101
  11. LASIX [Suspect]
     Indication: FLUID RETENTION
  12. ATENOLOL [Concomitant]
     Dosage: 100 MG, UNK

REACTIONS (4)
  - HEART RATE INCREASED [None]
  - CHEST PAIN [None]
  - SWELLING [None]
  - GAIT DISTURBANCE [None]
